FAERS Safety Report 9410417 (Version 1)
Quarter: 2013Q3

REPORT INFORMATION
  Report Type: Spontaneous
  Country: FR (occurrence: FR)
  Receive Date: 20130719
  Receipt Date: 20130719
  Transmission Date: 20140515
  Serious: Yes (Hospitalization)
  Sender: FDA-Public Use
  Company Number: FR-ASTRAZENECA-2013SE51741

PATIENT
  Age: 30068 Day
  Sex: Male

DRUGS (6)
  1. XYLOCAINE [Suspect]
     Indication: LOCAL ANAESTHESIA
     Route: 042
     Dates: start: 20130124
  2. HYPNOVEL [Suspect]
     Indication: ANAESTHESIA
     Route: 042
     Dates: start: 20130124
  3. AUGMENTIN [Suspect]
     Route: 042
     Dates: start: 20130124
  4. CORDARONE [Concomitant]
     Indication: ATRIAL FIBRILLATION
  5. INEXIUM [Concomitant]
  6. TAHOR [Concomitant]

REACTIONS (3)
  - Bronchospasm [Recovered/Resolved]
  - Endotoxic shock [Recovered/Resolved]
  - Rash [Recovered/Resolved]
